FAERS Safety Report 5201098-3 (Version None)
Quarter: 2007Q1

REPORT INFORMATION
  Report Type: 
  Country: None (occurrence: None)
  Receive Date: 20070103
  Receipt Date: 20061219
  Transmission Date: 20070707
  Serious: Yes (Hospitalization)
  Sender: FDA-Public Use
  Company Number: 227497

PATIENT
  Age: 48 Year
  Sex: Male

DRUGS (4)
  1. AVASTIN [Suspect]
     Indication: COLORECTAL CANCER METASTATIC
     Dosage: 7.5 MG/KG, Q3W, INTRAVENOUS
     Route: 042
     Dates: start: 20060622
  2. AVASTIN [Suspect]
  3. CAPECITABINE (CAPECITABINE) [Suspect]
     Indication: COLORECTAL CANCER METASTATIC
     Dosage: 1 G/M2, ORAL
     Route: 048
     Dates: start: 20060622, end: 20060626
  4. OXALIPLATIN [Suspect]
     Indication: COLORECTAL CANCER METASTATIC
     Dosage: 130 MG/KG, Q3W, INTRAVENOUS
     Route: 042
     Dates: start: 20060622

REACTIONS (3)
  - CHILLS [None]
  - INJECTION SITE INFECTION [None]
  - PYREXIA [None]
